FAERS Safety Report 8859622 (Version 1)
Quarter: 2012Q4

REPORT INFORMATION
  Report Type: Spontaneous
  Country: US (occurrence: None)
  Receive Date: 20121022
  Receipt Date: 20121022
  Transmission Date: 20130627
  Serious: Yes (Life-Threatening, Hospitalization, Other)
  Sender: FDA-Public Use
  Company Number: CPI 3913

PATIENT
  Age: 29 Year
  Sex: Male
  Weight: 60 kg

DRUGS (2)
  1. N-ACETYLCYSTEINE (PARACETAMOL) UNKNOWN [Suspect]
     Indication: DRUG LEVEL INCREASED
     Dosage: Unknown bolus+10days IV
Bolus plus 10 days
  2. N-ACETYLCYSTEINE (PARACETAMOL) UNKNOWN [Suspect]
     Indication: ENZYME LEVEL INCREASED
     Dosage: Unknown bolus+10days IV
Bolus plus 10 days

REACTIONS (3)
  - Hepatitis fulminant [None]
  - Multi-organ failure [None]
  - Coagulopathy [None]
